FAERS Safety Report 15310106 (Version 2)
Quarter: 2018Q3

REPORT INFORMATION
  Report Type: Spontaneous
  Country: US (occurrence: US)
  Receive Date: 20180823
  Receipt Date: 20180827
  Transmission Date: 20181010
  Serious: No
  Sender: FDA-Public Use
  Company Number: US-PFIZER INC-2018338461

PATIENT
  Age: 26 Year
  Sex: Male

DRUGS (2)
  1. SOMAVERT [Suspect]
     Active Substance: PEGVISOMANT
     Dosage: 60 MG, DAILY
     Dates: start: 20170407
  2. SOMAVERT [Suspect]
     Active Substance: PEGVISOMANT
     Dosage: 60 MG, DAILY
     Dates: start: 20170421

REACTIONS (13)
  - Blood triglycerides increased [Unknown]
  - Low density lipoprotein increased [Unknown]
  - Thyroid gland scan abnormal [Unknown]
  - Alanine aminotransferase increased [Unknown]
  - Blood glucose increased [Unknown]
  - Non-high-density lipoprotein cholesterol increased [Unknown]
  - Product use issue [Unknown]
  - Insulin-like growth factor increased [Unknown]
  - Thyroxine free decreased [Unknown]
  - Bone density increased [Unknown]
  - Blood testosterone increased [Unknown]
  - Blood thyroid stimulating hormone decreased [Unknown]
  - Glycosylated haemoglobin increased [Unknown]

NARRATIVE: CASE EVENT DATE: 20170407
